FAERS Safety Report 25407360 (Version 1)
Quarter: 2025Q2

REPORT INFORMATION
  Report Type: Spontaneous
  Country: US (occurrence: None)
  Receive Date: 20250605
  Receipt Date: 20250605
  Transmission Date: 20250717
  Serious: Yes (Hospitalization)
  Sender: FDA-CTU
  Company Number: None

PATIENT
  Age: 71 Year
  Sex: Female

DRUGS (14)
  1. TACROLIMUS [Suspect]
     Active Substance: TACROLIMUS
     Indication: Liver transplant
     Dosage: FREQUENCY : TWICE A DAY;?
     Route: 048
  2. CARVEDILOL [Suspect]
     Active Substance: CARVEDILOL
     Route: 048
  3. HYDRALAZINE [Suspect]
     Active Substance: HYDRALAZINE HYDROCHLORIDE
  4. AMLODIPINE BESYLATE [Concomitant]
     Active Substance: AMLODIPINE BESYLATE
  5. TOPAMAX 25MG TABLETS [Concomitant]
  6. B-12 2500MCG TABLETS [Concomitant]
  7. B-COMPLEX TABLETS [Concomitant]
  8. BIOTIN 10000MCG SOFTGELS [Concomitant]
  9. SLOW MAG CHLORIDE W/CALC EC TABLETS [Concomitant]
  10. VITAMIN D 1,000IU LIQ SFTGL CAPS [Concomitant]
  11. LISINOPRIL [Concomitant]
     Active Substance: LISINOPRIL
  12. ATORVASTATIN [Concomitant]
     Active Substance: ATORVASTATIN
  13. SYNTHROID 0.088MG (88MCG)TABLETS [Concomitant]
  14. FAMOTIDINE 40MG TABLETS [Concomitant]

REACTIONS (2)
  - Hyponatraemia [None]
  - Bradycardia [None]

NARRATIVE: CASE EVENT DATE: 20250512
